FAERS Safety Report 8308215-7 (Version None)
Quarter: 2012Q2

REPORT INFORMATION
  Report Type: 
  Country: None (occurrence: None)
  Receive Date: 20120424
  Receipt Date: 20120411
  Transmission Date: 20120825
  Serious: Yes (Hospitalization)
  Sender: FDA-Public Use
  Company Number: NL-ROCHE-1059284

PATIENT
  Sex: Female
  Weight: 54.6 kg

DRUGS (6)
  1. KOELZALF COOLING OIL [Concomitant]
     Dosage: THIN SMEAR, DAILY DOSE: VT
     Dates: start: 20111115
  2. DESLORATADINE [Concomitant]
     Route: 048
     Dates: start: 20111115
  3. OXYCONTIN [Concomitant]
     Dates: start: 20110802
  4. OXYCONTIN [Concomitant]
     Route: 048
     Dates: start: 20111115
  5. OXYCODONE HCL [Concomitant]
     Route: 048
     Dates: start: 20111115
  6. VEMURAFENIB [Suspect]
     Indication: METASTATIC MALIGNANT MELANOMA
     Dosage: LAST DOSE PRIOR TO SAE: ON 10 APRIL 2012
     Route: 048
     Dates: start: 20111123

REACTIONS (1)
  - DYSPHAGIA [None]
